FAERS Safety Report 8176018-2 (Version None)
Quarter: 2012Q1

REPORT INFORMATION
  Report Type: 
  Country: None (occurrence: None)
  Receive Date: 20120228
  Receipt Date: 20120228
  Transmission Date: 20120608
  Serious: Yes (Other)
  Sender: FDA-Public Use
  Company Number: None

PATIENT
  Sex: Female
  Weight: 97.5234 kg

DRUGS (1)
  1. KLONOPIN [Suspect]
     Indication: PANIC ATTACK
     Dosage: 1/2 TAB TID

REACTIONS (3)
  - PRURITUS [None]
  - PRODUCT SUBSTITUTION ISSUE [None]
  - RASH [None]
